FAERS Safety Report 9094561 (Version 1)
Quarter: 2013Q1

REPORT INFORMATION
  Report Type: Spontaneous
  Country: US (occurrence: US)
  Receive Date: 20130204
  Receipt Date: 20130204
  Transmission Date: 20140127
  Serious: Yes (Other)
  Sender: FDA-Public Use
  Company Number: US-BAYER-2013-012622

PATIENT
  Age: 25 Year
  Sex: Female
  Weight: 61 kg

DRUGS (1)
  1. MIRENA [Suspect]
     Indication: GENITAL HAEMORRHAGE
     Dosage: 20 MCG/24HR, CONT
     Route: 015
     Dates: start: 20120605, end: 20130108

REACTIONS (2)
  - Vaginal haemorrhage [None]
  - Device expulsion [None]
